FAERS Safety Report 8339397-9 (Version None)
Quarter: 2012Q2

REPORT INFORMATION
  Report Type: 
  Country: None (occurrence: None)
  Receive Date: 20120507
  Receipt Date: 20120405
  Transmission Date: 20120825
  Serious: Yes (Death, Life-Threatening, Hospitalization, Other)
  Sender: FDA-Public Use
  Company Number: US-BAYER-201025923NA

PATIENT
  Age: 54 Year
  Sex: Female
  Weight: 56.818 kg

DRUGS (31)
  1. ZOFRAN [Concomitant]
     Indication: VOMITING
     Route: 060
     Dates: start: 20100415, end: 20100615
  2. ARANESP [Concomitant]
     Indication: ANAEMIA
     Dosage: EVERY 2 WEEKS
     Route: 058
     Dates: start: 20070808, end: 20100615
  3. COMPAZINE [Concomitant]
     Indication: VOMITING
     Route: 048
     Dates: start: 20070801
  4. COMPAZINE [Concomitant]
     Indication: NAUSEA
  5. NORVASC [Concomitant]
     Indication: HYPERTENSION
     Route: 048
     Dates: start: 20100707
  6. MEK INHIBITOR (DIHYDROXYPROP-DIFLU-METHOXYPHEN-CYCLOPROPA-SULFAMI) [Suspect]
     Dosage: PM DOSE ONLY - CYCLE 2
     Route: 048
     Dates: start: 20100608, end: 20100608
  7. PROTONIX [Concomitant]
     Indication: GASTROOESOPHAGEAL REFLUX DISEASE
     Route: 048
     Dates: start: 20100429, end: 20100615
  8. MEK INHIBITOR (DIHYDROXYPROP-DIFLU-METHOXYPHEN-CYCLOPROPA-SULFAMI) [Suspect]
     Indication: PANCREATIC CARCINOMA
     Dosage: CYCLE 1
     Route: 048
     Dates: start: 20100503, end: 20100531
  9. SORAFENIB (RAF KINASE INHIBITOR) [Suspect]
     Dosage: PM DOSE ONLY - CYCLE 2
     Route: 048
     Dates: start: 20100614, end: 20100614
  10. LEXAPRO [Concomitant]
     Indication: DEPRESSION
     Route: 048
     Dates: start: 20020101
  11. ZOFRAN [Concomitant]
     Indication: NAUSEA
  12. MEK INHIBITOR (DIHYDROXYPROP-DIFLU-METHOXYPHEN-CYCLOPROPA-SULFAMI) [Suspect]
     Dosage: CYCLE 3
     Route: 048
     Dates: start: 20100717, end: 20100726
  13. SORAFENIB (RAF KINASE INHIBITOR) [Suspect]
     Indication: PANCREATIC CARCINOMA
     Dosage: CYCLE 1
     Route: 048
     Dates: start: 20100506, end: 20100531
  14. MICARDIS [Concomitant]
     Indication: HYPERTENSION
     Route: 048
     Dates: start: 20090401
  15. MEK INHIBITOR (DIHYDROXYPROP-DIFLU-METHOXYPHEN-CYCLOPROPA-SULFAMI) [Suspect]
     Dosage: CYCLE 2
     Route: 048
     Dates: start: 20100601, end: 20100606
  16. MEK INHIBITOR (DIHYDROXYPROP-DIFLU-METHOXYPHEN-CYCLOPROPA-SULFAMI) [Suspect]
     Dosage: CYCLE 2
     Route: 048
     Dates: start: 20100609, end: 20100614
  17. SORAFENIB (RAF KINASE INHIBITOR) [Suspect]
     Dosage: CYCLE 2
     Route: 048
     Dates: start: 20100601, end: 20100606
  18. SORAFENIB (RAF KINASE INHIBITOR) [Suspect]
     Dosage: CYCLE 2
     Route: 048
     Dates: start: 20100609, end: 20100613
  19. SORAFENIB (RAF KINASE INHIBITOR) [Suspect]
     Dosage: CYCLE 4
     Route: 048
     Dates: start: 20100726, end: 20100821
  20. SORAFENIB (RAF KINASE INHIBITOR) [Suspect]
     Dosage: PM DOSE ONLY - CYCLE 2
     Route: 048
     Dates: start: 20100607, end: 20100607
  21. MICARDIS [Concomitant]
     Dosage: 80/12.5MG - AS USED DOSE: 80-12.5 MG
     Route: 048
     Dates: start: 20100707
  22. REGLAN [Concomitant]
     Indication: ABDOMINAL PAIN UPPER
     Route: 048
     Dates: start: 20100315, end: 20100615
  23. HYDROCODONE BITARTRATE AND ACETAMINOPHEN [Concomitant]
     Indication: ABDOMINAL PAIN
     Dosage: 2 TABS PRN - AS USED DOSE: 5-500 MG
     Route: 048
     Dates: start: 20100419
  24. NEBIVOLOL [Concomitant]
     Indication: HYPERTENSION
     Route: 048
     Dates: start: 20100707
  25. SORAFENIB (RAF KINASE INHIBITOR) [Suspect]
     Dosage: CYCLE 3
     Route: 048
     Dates: start: 20100717, end: 20100726
  26. SORAFENIB (RAF KINASE INHIBITOR) [Suspect]
     Dosage: PM DOSE ONLY - CYCLE 2
     Route: 048
     Dates: start: 20100608, end: 20100608
  27. IMODIUM A-D [Concomitant]
     Indication: DIARRHOEA
     Route: 048
     Dates: start: 20100509
  28. PANCRELIPASE [Concomitant]
     Indication: DIARRHOEA
     Dosage: 4.5-25 TO 20K 3 TABS
     Route: 048
     Dates: start: 20100707
  29. MEK INHIBITOR (DIHYDROXYPROP-DIFLU-METHOXYPHEN-CYCLOPROPA-SULFAMI) [Suspect]
     Dosage: CYCLE 4
     Route: 048
     Dates: start: 20100726, end: 20100821
  30. GABAPENTIN [Concomitant]
     Indication: ABDOMINAL PAIN
     Route: 048
     Dates: start: 20100707
  31. MEK INHIBITOR (DIHYDROXYPROP-DIFLU-METHOXYPHEN-CYCLOPROPA-SULFAMI) [Suspect]
     Dosage: PM DOSE ONLY - CYCLE 2
     Route: 048
     Dates: start: 20100607, end: 20100607

REACTIONS (5)
  - INFECTIOUS PLEURAL EFFUSION [None]
  - PANCREATIC CARCINOMA [None]
  - SUBARACHNOID HAEMORRHAGE [None]
  - FALL [None]
  - THROMBOCYTOPENIA [None]
